FAERS Safety Report 6083994-0 (Version None)
Quarter: 2009Q1

REPORT INFORMATION
  Report Type: 
  Country: None (occurrence: None)
  Receive Date: 20090219
  Receipt Date: 20090206
  Transmission Date: 20090719
  Serious: Yes (Other)
  Sender: FDA-Public Use
  Company Number: CA-ELI_LILLY_AND_COMPANY-CA200811006355

PATIENT
  Age: 52 Year
  Sex: Female

DRUGS (6)
  1. CYMBALTA [Suspect]
     Dosage: 1 D/F, UNK
  2. ELTROXIN [Concomitant]
  3. TRIAZIDE [Concomitant]
  4. MICARDIS [Concomitant]
  5. TRAZODONE HCL [Concomitant]
  6. LORAZEPAM [Concomitant]

REACTIONS (1)
  - COLITIS [None]
